FAERS Safety Report 17414260 (Version 2)
Quarter: 2020Q1

REPORT INFORMATION
  Report Type: Spontaneous
  Country: US (occurrence: US)
  Receive Date: 20200213
  Receipt Date: 20200226
  Transmission Date: 20200409
  Serious: Yes (Other)
  Sender: FDA-Public Use
  Company Number: US-PFIZER INC-2020060681

PATIENT
  Age: 77 Year
  Sex: Male

DRUGS (1)
  1. INLYTA [Suspect]
     Active Substance: AXITINIB
     Indication: RENAL CANCER METASTATIC
     Dosage: 5 MG, UNK

REACTIONS (5)
  - Raynaud^s phenomenon [Unknown]
  - Second primary malignancy [Unknown]
  - Chondrocalcinosis pyrophosphate [Unknown]
  - Sjogren^s syndrome [Unknown]
  - Prostate cancer [Unknown]
